FAERS Safety Report 24460310 (Version 1)
Quarter: 2024Q4

REPORT INFORMATION
  Report Type: Spontaneous
  Country: US (occurrence: None)
  Receive Date: 20241018
  Receipt Date: 20241018
  Transmission Date: 20250115
  Serious: Yes (Hospitalization)
  Sender: Public
  Company Number: None

PATIENT
  Sex: Female
  Weight: 74.2 kg

DRUGS (2)
  1. FEMARA [Suspect]
     Active Substance: LETROZOLE
  2. PALBOCICLIB [Suspect]
     Active Substance: PALBOCICLIB

REACTIONS (2)
  - Chest discomfort [None]
  - Respiratory syncytial virus test positive [None]

NARRATIVE: CASE EVENT DATE: 20231105
